FAERS Safety Report 9838747 (Version 3)
Quarter: 2014Q1

REPORT INFORMATION
  Report Type: Spontaneous
  Country: IT (occurrence: IT)
  Receive Date: 20140123
  Receipt Date: 20140225
  Transmission Date: 20141002
  Serious: Yes (Death, Other)
  Sender: FDA-Public Use
  Company Number: IT-OTSUKA-US-2014-10112

PATIENT
  Sex: 0

DRUGS (5)
  1. BUSULFEX [Suspect]
     Indication: BONE MARROW CONDITIONING REGIMEN
     Dosage: 9.6 MG/KG, UNK
     Route: 042
  2. THIOTEPA [Suspect]
     Indication: BONE MARROW CONDITIONING REGIMEN
     Dosage: 10 MG/KG, UNK
     Route: 065
  3. FLUDARABINE [Suspect]
     Indication: BONE MARROW CONDITIONING REGIMEN
     Dosage: 150 MG/KG, UNK
     Route: 065
  4. CYCLOSPORIN A [Concomitant]
     Dosage: UNK
  5. MYCOPHENOLATE MOFETIL [Concomitant]
     Dosage: UNK

REACTIONS (4)
  - Sepsis [Fatal]
  - Acute graft versus host disease [Fatal]
  - Leukaemia recurrent [Fatal]
  - Chronic graft versus host disease [Unknown]
